FAERS Safety Report 23801899 (Version 2)
Quarter: 2024Q3

REPORT INFORMATION
  Report Type: Spontaneous
  Country: GR (occurrence: GR)
  Receive Date: 20240501
  Receipt Date: 20240711
  Transmission Date: 20241017
  Serious: Yes (Other)
  Sender: AMGEN
  Company Number: GR-AMGEN-GRCSP2024084432

PATIENT
  Age: 65 Year
  Sex: Male

DRUGS (2)
  1. APREMILAST [Suspect]
     Active Substance: APREMILAST
     Indication: Psoriatic arthropathy
     Dosage: UNK
     Route: 065
  2. SECUKINUMAB [Suspect]
     Active Substance: SECUKINUMAB
     Indication: Psoriasis
     Dosage: 300 MILLIGRAM (INDUCTION WITH 300MG WEEKLY FOR ONE MONTH AND MAINTENANCE WITH 300MG MONTHLY)
     Route: 065

REACTIONS (2)
  - Crohn^s disease [Unknown]
  - Treatment failure [Unknown]
